FAERS Safety Report 19947032 (Version 1)
Quarter: 2021Q4

REPORT INFORMATION
  Report Type: Report from Study
  Country: US (occurrence: US)
  Receive Date: 20211013
  Receipt Date: 20211013
  Transmission Date: 20220303
  Serious: Yes (Hospitalization)
  Sender: FDA-Public Use
  Company Number: US-BIOVITRUM-2021US8893

PATIENT
  Age: 3 Year
  Sex: Male

DRUGS (1)
  1. KINERET [Suspect]
     Active Substance: ANAKINRA
     Indication: Autoinflammatory disease
     Route: 058
     Dates: start: 202009

REACTIONS (3)
  - Rhinovirus infection [Unknown]
  - Respiratory syncytial virus infection [Unknown]
  - Off label use [Unknown]

NARRATIVE: CASE EVENT DATE: 20200901
